FAERS Safety Report 23855550 (Version 4)
Quarter: 2024Q2

REPORT INFORMATION
  Report Type: Report from Study
  Country: GR (occurrence: GR)
  Receive Date: 20240514
  Receipt Date: 20240620
  Transmission Date: 20240716
  Serious: Yes (Hospitalization, Other)
  Sender: FDA-Public Use
  Company Number: GR-ABBVIE-5589832

PATIENT
  Age: 73 Year
  Sex: Female
  Weight: 82 kg

DRUGS (4)
  1. CARBIDOPA\LEVODOPA [Suspect]
     Active Substance: CARBIDOPA\LEVODOPA
     Indication: Parkinson^s disease
     Dosage: MORNING DOSE: 13.0ML; CONTINUOUS RATE: 2.9ML/H; EXTRA DOSE: 1.5ML
     Route: 050
     Dates: start: 20230306
  2. CARBIDOPA\LEVODOPA [Suspect]
     Active Substance: CARBIDOPA\LEVODOPA
     Dosage: MORNING DOSE: 13.0ML; CONTINUOUS RATE: 2.9ML/H; EXTRA DOSE: 1.5ML
     Route: 050
  3. CARBIDOPA\LEVODOPA [Suspect]
     Active Substance: CARBIDOPA\LEVODOPA
     Dosage: MORNING DOSE: 13.0ML; CONTINUOUS RATE: 2.9ML/H; EXTRA DOSE: 1.5ML
     Route: 050
  4. CARBIDOPA\LEVODOPA [Suspect]
     Active Substance: CARBIDOPA\LEVODOPA
     Dosage: MORNING DOSE: 13.0ML; CONTINUOUS RATE: 2.9ML/H; EXTRA DOSE: 1.5ML
     Route: 050

REACTIONS (9)
  - Fistula [Unknown]
  - Stoma site irritation [Unknown]
  - Stoma site erythema [Unknown]
  - Stoma site pain [Unknown]
  - Stoma site odour [Not Recovered/Not Resolved]
  - Stoma site haemorrhage [Not Recovered/Not Resolved]
  - Stoma site hypergranulation [Not Recovered/Not Resolved]
  - Stoma site discharge [Not Recovered/Not Resolved]
  - Hospitalisation [Recovered/Resolved]
